FAERS Safety Report 5623818-6 (Version None)
Quarter: 2008Q1

REPORT INFORMATION
  Report Type: 
  Country: None (occurrence: None)
  Receive Date: 20080207
  Receipt Date: 20080125
  Transmission Date: 20080703
  Serious: Yes (Hospitalization)
  Sender: FDA-Public Use
  Company Number: 02100-EUR-08-0009

PATIENT
  Age: 55 Year
  Sex: Female

DRUGS (8)
  1. PLETAL [Suspect]
     Indication: INTERMITTENT CLAUDICATION
     Dosage: 100 MG, BID
     Dates: start: 20070423
  2. RAMIPRIL [Concomitant]
  3. CAVITELOL [Concomitant]
  4. TORSEMIDE [Concomitant]
  5. INEGY [Concomitant]
  6. METFORMIN HCL [Concomitant]
  7. AMLODIPINE [Concomitant]
  8. PHENPROCOUMON (PHENPROCOUMON) [Concomitant]

REACTIONS (2)
  - CELLULITIS [None]
  - ERYSIPELAS [None]
